FAERS Safety Report 14121035 (Version 1)
Quarter: 2017Q4

REPORT INFORMATION
  Report Type: Spontaneous
  Country: US (occurrence: US)
  Receive Date: 20171024
  Receipt Date: 20171024
  Transmission Date: 20180321
  Serious: No
  Sender: FDA-Public Use
  Company Number: US-SA-2016SA194169

PATIENT
  Age: 5 Year
  Sex: Male
  Weight: 18.1 kg

DRUGS (9)
  1. ACETAMINOPHEN. [Concomitant]
     Active Substance: ACETAMINOPHEN
     Dosage: G TUBE AS NEEDED
     Dates: start: 20161011
  2. EPIPEN [Concomitant]
     Active Substance: EPINEPHRINE
     Dates: start: 20161011
  3. LUMIZYME [Suspect]
     Active Substance: ALGLUCOSIDASE ALFA
     Indication: GLYCOGEN STORAGE DISEASE TYPE II
     Route: 042
     Dates: start: 20160121
  4. METHYLPREDNISOLONE. [Concomitant]
     Active Substance: METHYLPREDNISOLONE
     Dates: start: 20161011
  5. NORMAL SALINE [Concomitant]
     Active Substance: SODIUM CHLORIDE
     Dosage: IV FLUSH
     Dates: start: 20161011
  6. L-M-X [Concomitant]
     Route: 061
     Dates: start: 20161011
  7. HEPARIN [Concomitant]
     Active Substance: HEPARIN SODIUM
     Dosage: DOSE: 10 UN/ML IV FLUSH
     Dates: start: 20161011
  8. DIPHENHYDRAMINE. [Concomitant]
     Active Substance: DIPHENHYDRAMINE
     Dosage: DOSE:50 MILLIGRAM(S)/MILLILITRE
     Dates: start: 20161011
  9. LIDOCAINE/PRILOCAINE [Concomitant]
     Route: 061
     Dates: start: 20161011

REACTIONS (1)
  - Pharyngitis streptococcal [Unknown]

NARRATIVE: CASE EVENT DATE: 201610
